FAERS Safety Report 8092186 (Version 2)
Quarter: 2014Q1

REPORT INFORMATION
  Report Type: Spontaneous
  Country: JP (occurrence: None)
  Receive Date: 20110805
  Receipt Date: 20140327
  Transmission Date: 20141002
  Serious: Yes (Other)
  Sender: FDA-Public Use
  Company Number: 2009JP007432

PATIENT
  Age: 15 Year
  Sex: Male
  Weight: 52 kg

DRUGS (3)
  1. PROGRAF [Suspect]
     Indication: PROPHYLAXIS AGAINST GRAFT VERSUS HOST DISEASE
  2. PROGRAF [Suspect]
     Indication: MYASTHENIA GRAVIS
  3. METHOTREXATE [Concomitant]

REACTIONS (3)
  - Cytomegalovirus viraemia [None]
  - Bone marrow failure [None]
  - Bone marrow transplant [None]
